FAERS Safety Report 19376228 (Version 4)
Quarter: 2021Q4

REPORT INFORMATION
  Report Type: Report from Study
  Country: US (occurrence: US)
  Receive Date: 20210604
  Receipt Date: 20211202
  Transmission Date: 20220303
  Serious: No
  Sender: FDA-Public Use
  Company Number: NVSC2021US119435

PATIENT
  Age: 50 Year
  Sex: Male

DRUGS (2)
  1. ENTRESTO [Suspect]
     Active Substance: SACUBITRIL\VALSARTAN
     Indication: Cardiac failure
     Dosage: 200 MG, BID (97.103 MG)
     Route: 048
     Dates: start: 202102
  2. ENTRESTO [Suspect]
     Active Substance: SACUBITRIL\VALSARTAN
     Dosage: 1 DOSAGE FORM,(97/103MG)
     Route: 048

REACTIONS (4)
  - Weight decreased [Recovered/Resolved]
  - Ejection fraction decreased [Recovering/Resolving]
  - Scan myocardial perfusion [Unknown]
  - Magnetic resonance imaging head normal [Recovered/Resolved]

NARRATIVE: CASE EVENT DATE: 20210501
